FAERS Safety Report 18391226 (Version 1)
Quarter: 2020Q4

REPORT INFORMATION
  Report Type: Spontaneous
  Country: GB (occurrence: GB)
  Receive Date: 20201016
  Receipt Date: 20201016
  Transmission Date: 20210114
  Serious: Yes (Other)
  Sender: FDA-Public Use
  Company Number: GB-ACCORD-205295

PATIENT
  Sex: Female
  Weight: 82 kg

DRUGS (1)
  1. SERTRALINE [Suspect]
     Active Substance: SERTRALINE HYDROCHLORIDE
     Indication: MAJOR DEPRESSION
     Dosage: UP TO 150MG PER DAY
     Route: 048
     Dates: start: 201101, end: 202008

REACTIONS (2)
  - Irritable bowel syndrome [Recovered/Resolved]
  - Anal incontinence [Recovered/Resolved with Sequelae]
